FAERS Safety Report 5938321-3 (Version None)
Quarter: 2008Q4

REPORT INFORMATION
  Report Type: 
  Country: None (occurrence: None)
  Receive Date: 20081103
  Receipt Date: 20081026
  Transmission Date: 20090506
  Serious: Yes (Other)
  Sender: FDA-Public Use
  Company Number: AT-JNJFOC-20081005900

PATIENT
  Age: 23 Year
  Sex: Male
  Weight: 78 kg

DRUGS (7)
  1. HALDOL [Suspect]
     Indication: DRUG USE FOR UNKNOWN INDICATION
     Route: 042
  2. SEROQUEL [Suspect]
     Route: 065
  3. SEROQUEL [Suspect]
     Route: 065
  4. SEROQUEL [Suspect]
     Route: 065
  5. SEROQUEL [Suspect]
     Indication: DRUG USE FOR UNKNOWN INDICATION
     Route: 065
  6. GEWACALM [Concomitant]
     Route: 042
  7. GEWACALM [Concomitant]
     Indication: DRUG USE FOR UNKNOWN INDICATION
     Route: 042

REACTIONS (2)
  - GLOSSODYNIA [None]
  - OROPHARYNGEAL SPASM [None]
